FAERS Safety Report 9417112 (Version 1)
Quarter: 2013Q3

REPORT INFORMATION
  Report Type: Spontaneous
  Country: GB (occurrence: None)
  Receive Date: 20130722
  Receipt Date: 20130722
  Transmission Date: 20140515
  Serious: Yes (Hospitalization)
  Sender: FDA-Public Use
  Company Number: HRA-MET20130037

PATIENT
  Age: 32 Year
  Sex: Female

DRUGS (1)
  1. METYRAPONE [Suspect]
     Indication: CUSHING^S SYNDROME
     Dosage: 1500 (500 MG, 3 IN 1 D)

REACTIONS (3)
  - Diarrhoea [None]
  - Decreased appetite [None]
  - Nausea [None]
